FAERS Safety Report 23719571 (Version 1)
Quarter: 2024Q2

REPORT INFORMATION
  Report Type: Spontaneous
  Country: US (occurrence: None)
  Receive Date: 20240408
  Receipt Date: 20240408
  Transmission Date: 20240716
  Serious: No
  Sender: FDA-Public Use
  Company Number: None

PATIENT
  Age: 66 Year
  Sex: Female

DRUGS (2)
  1. TADALAFIL [Suspect]
     Active Substance: TADALAFIL
     Indication: Pulmonary arterial hypertension
     Route: 048
     Dates: start: 202306
  2. UPTRAVI [Concomitant]
     Active Substance: SELEXIPAG

REACTIONS (2)
  - Abdominal pain upper [None]
  - Hernia [None]

NARRATIVE: CASE EVENT DATE: 20240322
